FAERS Safety Report 15255221 (Version 1)
Quarter: 2018Q3

REPORT INFORMATION
  Report Type: Spontaneous
  Country: US (occurrence: US)
  Receive Date: 20180808
  Receipt Date: 20180808
  Transmission Date: 20181010
  Serious: No
  Sender: FDA-Public Use
  Company Number: US-MYLANLABS-2018M1060473

PATIENT
  Sex: Female
  Weight: 63.39 kg

DRUGS (2)
  1. AZELASTINE HYDROCHLORIDE NASAL SPRAY [Suspect]
     Active Substance: AZELASTINE HYDROCHLORIDE
     Indication: RHINITIS ALLERGIC
     Dosage: UNK ONE SPRAY IN EACH NOSTRIL, BID
     Route: 045
     Dates: start: 201703
  2. ALLEGRA [Suspect]
     Active Substance: FEXOFENADINE HYDROCHLORIDE
     Indication: HYPERSENSITIVITY
     Dosage: 118 MG, UNK
     Route: 048

REACTIONS (1)
  - Tremor [Not Recovered/Not Resolved]
